FAERS Safety Report 8885707 (Version 1)
Quarter: 2012Q4

REPORT INFORMATION
  Report Type: 
  Country: BR (occurrence: BR)
  Receive Date: 20121102
  Receipt Date: 20121102
  Transmission Date: 20130627
  Serious: Yes (Other)
  Sender: FDA-Public Use
  Company Number: BR-AMGEN-BRASP2012069696

PATIENT
  Age: 61 Year
  Sex: Female
  Weight: 80 kg

DRUGS (3)
  1. ENBREL [Suspect]
     Indication: RHEUMATOID ARTHRITIS
     Dosage: 50 mg, once weekly
     Route: 058
     Dates: start: 201112
  2. DIPIRONE [Concomitant]
     Indication: PAIN
     Dosage: unspecified dose, when the pains are very strong
  3. BETATRINTA [Concomitant]
     Indication: PAIN
     Dosage: unspecified dose, when the pains are very strong

REACTIONS (3)
  - Rheumatoid arthritis [Unknown]
  - Bone pain [Unknown]
  - Pain [Unknown]
